FAERS Safety Report 7402351-5 (Version None)
Quarter: 2011Q1

REPORT INFORMATION
  Report Type: 
  Country: None (occurrence: None)
  Receive Date: 20110331
  Receipt Date: 20110323
  Transmission Date: 20110831
  Serious: Yes (Hospitalization, Other)
  Sender: FDA-Public Use
  Company Number: AXC-2011-000117

PATIENT
  Age: 8 Year
  Sex: Female

DRUGS (8)
  1. CORTICOSTEROIDS () UNKNOWN [Suspect]
     Indication: COLITIS ULCERATIVE
  2. MESALAMINE [Suspect]
     Indication: COLITIS ULCERATIVE
     Dosage: RECTAL
     Route: 054
  3. MESALAMINE [Suspect]
     Indication: COLITIS ULCERATIVE
     Dosage: ORAL
     Route: 048
  4. AZATHIOPRINE [Suspect]
     Indication: COLITIS ULCERATIVE
  5. MERCAPTOPURINE [Suspect]
     Indication: POUCHITIS
     Dosage: 1.5 MG/KG, QD,
  6. LOPERAMIDE [Suspect]
     Indication: COLITIS ULCERATIVE
  7. SULFASALAZINE [Suspect]
     Indication: COLITIS ULCERATIVE
  8. PROBIOTIC FORMULATION (VSL NO. 3) () UNKNOWN [Suspect]
     Indication: POUCHITIS

REACTIONS (2)
  - POUCHITIS [None]
  - TREATMENT FAILURE [None]
